FAERS Safety Report 21994487 (Version 2)
Quarter: 2023Q1

REPORT INFORMATION
  Report Type: Report from Study
  Country: US (occurrence: US)
  Receive Date: 20230215
  Receipt Date: 20230307
  Transmission Date: 20230418
  Serious: Yes (Hospitalization)
  Sender: FDA-Public Use
  Company Number: US-JNJFOC-20230222236

PATIENT

DRUGS (5)
  1. NIRAPARIB [Suspect]
     Active Substance: NIRAPARIB
     Indication: Prostate cancer
     Dosage: 200 MG, QD
     Route: 048
     Dates: start: 20221207, end: 20230130
  2. CETRELIMAB [Suspect]
     Active Substance: CETRELIMAB
     Indication: Prostate cancer
     Dosage: 480 MG, Q4W
     Route: 042
     Dates: start: 20221207, end: 20230130
  3. CETRELIMAB [Suspect]
     Active Substance: CETRELIMAB
     Dosage: 360 MG, Q3W
     Route: 042
     Dates: start: 20220720, end: 20221114
  4. CABAZITAXEL [Suspect]
     Active Substance: CABAZITAXEL
     Indication: Prostate cancer
     Dosage: 25 MG/M2, Q3W
     Route: 042
     Dates: start: 20220720, end: 20221114
  5. CARBOPLATIN [Suspect]
     Active Substance: CARBOPLATIN
     Indication: Prostate cancer
     Dosage: 4 AUC, Q3W
     Route: 042
     Dates: start: 20220720, end: 20221114

REACTIONS (1)
  - Pelvic pain [Unknown]

NARRATIVE: CASE EVENT DATE: 20230206
